FAERS Safety Report 7522049-2 (Version None)
Quarter: 2011Q2

REPORT INFORMATION
  Report Type: 
  Country: None (occurrence: None)
  Receive Date: 20110603
  Receipt Date: 20110520
  Transmission Date: 20111010
  Serious: Yes (Other)
  Sender: FDA-Public Use
  Company Number: CA-JNJFOC-20110510443

PATIENT
  Sex: Male
  Weight: 102 kg

DRUGS (6)
  1. REMICADE [Suspect]
     Indication: COLITIS ULCERATIVE
     Route: 042
     Dates: start: 20091106
  2. ALERTEC [Concomitant]
     Route: 048
  3. PRILOSEC [Concomitant]
     Route: 065
  4. CITALOPRAM HYDROBROMIDE [Concomitant]
     Route: 065
  5. VITAMIN D [Concomitant]
     Route: 065
  6. CALCIUM CARBONATE [Concomitant]
     Route: 065

REACTIONS (2)
  - NEPHROLITHIASIS [None]
  - ABDOMINAL PAIN [None]
